FAERS Safety Report 7549355-X (Version None)
Quarter: 2011Q2

REPORT INFORMATION
  Report Type: 
  Country: None (occurrence: None)
  Receive Date: 20110615
  Receipt Date: 20030408
  Transmission Date: 20111010
  Serious: Yes (Hospitalization)
  Sender: FDA-Public Use
  Company Number: PHHO2003JP04251

PATIENT
  Sex: Male
  Weight: 62 kg

DRUGS (7)
  1. SPARA [Concomitant]
     Dosage: 200 MG, UNK
     Dates: start: 20020503, end: 20020516
  2. DIOVAN [Suspect]
     Indication: HYPERTENSION
     Dosage: 80 MG, UNK
     Route: 048
     Dates: start: 20020318, end: 20020507
  3. OZEX [Concomitant]
     Dosage: 450 MG, UNK
     Dates: start: 20020329, end: 20020404
  4. PURSENNID [Concomitant]
     Indication: CONSTIPATION
     Dosage: 24 MG, UNK
     Dates: start: 20020325, end: 20020429
  5. CEFOTIAM HYDROCHLORIDE [Concomitant]
     Dosage: 2 G, UNK
     Route: 048
     Dates: start: 20020326, end: 20020502
  6. RILMAZAFONE [Concomitant]
     Indication: INSOMNIA
     Dosage: 1 MG, UNK
     Route: 048
     Dates: start: 20020325, end: 20020429
  7. ALTAT [Concomitant]
     Dosage: 150 MG, UNK
     Route: 048
     Dates: start: 20020503, end: 20020516

REACTIONS (3)
  - WHITE BLOOD CELL COUNT INCREASED [None]
  - EOSINOPHIL COUNT INCREASED [None]
  - NEPHROLITHIASIS [None]
